FAERS Safety Report 7963643 (Version 3)
Quarter: 2015Q4

REPORT INFORMATION
  Report Type: Spontaneous
  Country: US (occurrence: US)
  Receive Date: 20110527
  Receipt Date: 20151123
  Transmission Date: 20160305
  Serious: Yes (Other)
  Sender: FDA-Public Use
  Company Number: US-BAYER-2011-044958

PATIENT
  Age: 31 Year
  Sex: Female
  Weight: 90.7 kg

DRUGS (4)
  1. IBUPROFEN [IBUPROFEN] [Concomitant]
     Active Substance: IBUPROFEN
  2. LEVOTHYROXINE. [Concomitant]
     Active Substance: LEVOTHYROXINE
     Indication: HYPERTHYROIDISM
     Dosage: UNK
     Dates: start: 2004
  3. YAZ [Suspect]
     Active Substance: DROSPIRENONE\ETHINYL ESTRADIOL
     Indication: MENSTRUATION IRREGULAR
     Dosage: UNK
     Dates: start: 200904, end: 200906
  4. AUGMENTIN [Concomitant]
     Active Substance: AMOXICILLIN\CLAVULANATE POTASSIUM
     Dosage: UNK
     Route: 048
     Dates: start: 20090309

REACTIONS (19)
  - Cerebrovascular accident [None]
  - Headache [None]
  - Visual impairment [None]
  - Embolism arterial [None]
  - Injury [None]
  - General physical health deterioration [None]
  - Facial pain [None]
  - Nausea [None]
  - VIIth nerve paralysis [None]
  - Anxiety [None]
  - Drooling [None]
  - Dysarthria [None]
  - Emotional distress [None]
  - Confusional state [None]
  - Photophobia [None]
  - Transient ischaemic attack [None]
  - Dizziness [None]
  - Asthenia [None]
  - Hemiparesis [None]

NARRATIVE: CASE EVENT DATE: 20090626
